FAERS Safety Report 5768078-0 (Version None)
Quarter: 2008Q2

REPORT INFORMATION
  Report Type: 
  Country: None (occurrence: None)
  Receive Date: 20080612
  Receipt Date: 20080103
  Transmission Date: 20081010
  Serious: No
  Sender: FDA-Public Use
  Company Number: US-ASTRAZENECA-2008UW00209

PATIENT
  Age: 65 Year
  Sex: Female
  Weight: 56.3 kg

DRUGS (5)
  1. FASLODEX [Suspect]
     Indication: BREAST CANCER
     Dosage: LEFT BUTTOCK
     Route: 030
     Dates: start: 20071001
  2. FASLODEX [Suspect]
     Dosage: RIGHT BUTTOCK
     Route: 030
     Dates: start: 20071101
  3. FASLODEX [Suspect]
     Dosage: LEFT BUTTOCK
     Route: 030
     Dates: start: 20071201
  4. CENTRUM [Concomitant]
  5. OSCAL [Concomitant]

REACTIONS (1)
  - SKIN DISORDER [None]
